FAERS Safety Report 7348100-0 (Version None)
Quarter: 2011Q1

REPORT INFORMATION
  Report Type: 
  Country: None (occurrence: None)
  Receive Date: 20110302
  Receipt Date: 20090408
  Transmission Date: 20110831
  Serious: Yes (Disabling)
  Sender: FDA-Public Use
  Company Number: UK-2009-00110

PATIENT
  Age: 58 Year
  Sex: Male
  Weight: 107.7 kg

DRUGS (9)
  1. AMLODIPINE [Concomitant]
  2. EXENATIDE (BYETTA) (UNKNOWN) [Suspect]
     Indication: DIABETES MELLITUS
     Dosage: 10 MG (10 MG), SUBCUTANEOUS
     Route: 058
     Dates: start: 20080424
  3. ASPIRIN [Concomitant]
  4. PANTOPRAZOLE (UNKNOWN) [Concomitant]
  5. IRBESARTAN [Concomitant]
  6. METFORMIN HCL [Concomitant]
  7. GABAPENTIN (UNKNOWN) [Concomitant]
  8. INDAPAMIDE HEMIHYDRATES (NATRILIX)(UNKNOWN) [Concomitant]
  9. SIMVASTATIN [Suspect]
     Indication: HYPERLIPIDAEMIA
     Dosage: 40 MG (40  MG), ORAL
     Route: 048

REACTIONS (3)
  - PAIN IN EXTREMITY [None]
  - TENDERNESS [None]
  - THROMBOSIS [None]
